FAERS Safety Report 5974833-4 (Version None)
Quarter: 2008Q4

REPORT INFORMATION
  Report Type: 
  Country: None (occurrence: None)
  Receive Date: 20081201
  Receipt Date: 20081126
  Transmission Date: 20090506
  Serious: Yes (Hospitalization, Other)
  Sender: FDA-Public Use
  Company Number: US-PFIZER INC-2008100501

PATIENT
  Sex: Female
  Weight: 64 kg

DRUGS (1)
  1. DILANTIN [Suspect]
     Dates: end: 20081126

REACTIONS (3)
  - ANTICONVULSANT DRUG LEVEL INCREASED [None]
  - BLOOD ALBUMIN DECREASED [None]
  - MENTAL STATUS CHANGES [None]
